FAERS Safety Report 5191416-7 (Version None)
Quarter: 2006Q4

REPORT INFORMATION
  Report Type: 
  Country: None (occurrence: None)
  Receive Date: 20061219
  Receipt Date: 20061219
  Transmission Date: 20070319
  Serious: Yes (Life-Threatening)
  Sender: FDA-Public Use
  Company Number: None

PATIENT
  Age: 80 Year
  Sex: Male
  Weight: 82.1011 kg

DRUGS (2)
  1. ARICEPT [Suspect]
     Indication: COGNITIVE DISORDER
     Dosage: QD
     Dates: start: 20061130
  2. BLOOD THINNERS [Concomitant]

REACTIONS (2)
  - EROSIVE OESOPHAGITIS [None]
  - GASTROINTESTINAL HAEMORRHAGE [None]
